FAERS Safety Report 9915521 (Version 1)
Quarter: 2014Q1

REPORT INFORMATION
  Report Type: Other
  Country: US (occurrence: US)
  Receive Date: 20140221
  Receipt Date: 20140221
  Transmission Date: 20141002
  Serious: Yes (Life-Threatening, Other)
  Sender: FDA-Public Use
  Company Number: US-BRISTOL-MYERS SQUIBB COMPANY-20232609

PATIENT
  Age: 72 Year
  Sex: Male

DRUGS (8)
  1. METFORMIN HCL [Suspect]
  2. LISINOPRIL [Suspect]
  3. ARIPIPRAZOLE [Suspect]
  4. LITHIUM CARBONATE [Suspect]
     Indication: BIPOLAR DISORDER
     Dosage: 450MG EVERY NIGHT AT BEDTIME?300 MG PER DAY.
  5. ASPIRIN [Suspect]
  6. DULOXETINE HCL [Suspect]
  7. OLANZAPINE [Suspect]
  8. PAROXETINE [Suspect]

REACTIONS (2)
  - Toxicity to various agents [Recovered/Resolved]
  - Lobar pneumonia [Unknown]
